APPROVED DRUG PRODUCT: VILAZODONE HYDROCHLORIDE
Active Ingredient: VILAZODONE HYDROCHLORIDE
Strength: 10MG
Dosage Form/Route: TABLET;ORAL
Application: A208202 | Product #001 | TE Code: AB
Applicant: ALEMBIC PHARMACEUTICALS LTD
Approved: Jan 10, 2020 | RLD: No | RS: No | Type: RX